FAERS Safety Report 9908336 (Version 1)
Quarter: 2014Q1

REPORT INFORMATION
  Report Type: Report from Study
  Country: CA (occurrence: CA)
  Receive Date: 20140219
  Receipt Date: 20140219
  Transmission Date: 20141002
  Serious: Yes (Other)
  Sender: FDA-Public Use
  Company Number: CA-JNJFOC-20140208657

PATIENT
  Sex: Female
  Weight: 87 kg

DRUGS (6)
  1. REMICADE [Suspect]
     Indication: PSORIASIS
     Route: 042
     Dates: start: 20131104
  2. OXAZEPAM [Concomitant]
     Route: 065
  3. PANTOLOC [Concomitant]
     Route: 065
  4. VITAMIN D [Concomitant]
     Route: 065
  5. ISONIAZID [Concomitant]
     Route: 065
  6. VITAMIN B6 [Concomitant]
     Route: 065

REACTIONS (7)
  - Chest discomfort [Recovered/Resolved]
  - Oxygen saturation decreased [Recovered/Resolved]
  - Infusion related reaction [Recovered/Resolved]
  - Cough [Recovered/Resolved]
  - Flushing [Recovered/Resolved]
  - Blood pressure increased [Recovered/Resolved]
  - Hot flush [Recovered/Resolved]
